FAERS Safety Report 14378056 (Version 1)
Quarter: 2018Q1

REPORT INFORMATION
  Report Type: Spontaneous
  Country: US (occurrence: US)
  Receive Date: 20180111
  Receipt Date: 20180111
  Transmission Date: 20180509
  Serious: Yes (Other)
  Sender: FDA-Public Use
  Company Number: US-BRISTOL-MYERS SQUIBB COMPANY-BMS-2018-001159

PATIENT
  Sex: Female

DRUGS (1)
  1. COUMADIN [Suspect]
     Active Substance: WARFARIN SODIUM
     Indication: PRODUCT USED FOR UNKNOWN INDICATION
     Dosage: 5 MG, BID
     Route: 048

REACTIONS (7)
  - Transient ischaemic attack [Unknown]
  - Depression [Unknown]
  - Cerebrovascular accident [Unknown]
  - Adverse event [Unknown]
  - Renal cancer [Unknown]
  - Drug ineffective [Unknown]
  - Thrombosis [Unknown]
